FAERS Safety Report 25424802 (Version 1)
Quarter: 2025Q2

REPORT INFORMATION
  Report Type: Spontaneous
  Country: FI (occurrence: FI)
  Receive Date: 20250611
  Receipt Date: 20250611
  Transmission Date: 20250716
  Serious: Yes (Death, Other)
  Sender: GLAXOSMITHKLINE
  Company Number: FI-GSK-FI2025EME072202

PATIENT

DRUGS (1)
  1. MOMELOTINIB DIHYDROCHLORIDE [Suspect]
     Active Substance: MOMELOTINIB DIHYDROCHLORIDE
     Indication: Myelofibrosis

REACTIONS (2)
  - Death [Fatal]
  - Drug effect less than expected [Unknown]
